FAERS Safety Report 13821564 (Version 1)
Quarter: 2017Q3

REPORT INFORMATION
  Report Type: Spontaneous
  Country: IE (occurrence: IE)
  Receive Date: 20170801
  Receipt Date: 20170801
  Transmission Date: 20171127
  Serious: Yes (Other)
  Sender: FDA-Public Use
  Company Number: IE-TEVA-790806ACC

PATIENT
  Age: 73 Year
  Sex: Female
  Weight: 62.65 kg

DRUGS (11)
  1. ZOTON FASTAB  ORODISPERSIBLE TABLET [Concomitant]
  2. NASACORT [Concomitant]
     Active Substance: TRIAMCINOLONE ACETONIDE
  3. DELTACORTRIL ENTERIC TABLETS GASTRO-RESISTANT [Concomitant]
  4. CALCICHEW-D3 FORTE CHEWABLE TABLETS, CALCIUM CARBO TABLETS CHEWABLE 50 [Concomitant]
     Active Substance: CALCIUM\CHOLECALCIFEROL
  5. IPRATROPIUM STERI-NEB [Concomitant]
  6. IPRAMOL STERI-NEB [Suspect]
     Active Substance: ALBUTEROL SULFATE\IPRATROPIUM BROMIDE
     Indication: ASTHMA
     Dosage: 0.5MG/2.5MG/.25ML NEBULISER SOLUTION
  7. SERETIDE [Suspect]
     Active Substance: FLUTICASONE PROPIONATE\SALMETEROL XINAFOATE
     Dosage: 500MCG TWICE DAILY
  8. VENTOLIN [Suspect]
     Active Substance: ALBUTEROL SULFATE
  9. IPRAMOL STERI-NEB [Suspect]
     Active Substance: ALBUTEROL SULFATE\IPRATROPIUM BROMIDE
     Indication: DYSPNOEA
  10. AVAMYS [Concomitant]
     Active Substance: FLUTICASONE FUROATE
  11. KLACID [Concomitant]
     Active Substance: CLARITHROMYCIN

REACTIONS (11)
  - Eye pain [Recovering/Resolving]
  - Palpitations [Recovering/Resolving]
  - Dizziness [Recovering/Resolving]
  - Insomnia [Recovering/Resolving]
  - Joint stiffness [Recovering/Resolving]
  - Muscular weakness [Recovering/Resolving]
  - Gait disturbance [Recovering/Resolving]
  - Myalgia [Not Recovered/Not Resolved]
  - Condition aggravated [Recovering/Resolving]
  - Depression [Recovering/Resolving]
  - Vision blurred [Recovering/Resolving]

NARRATIVE: CASE EVENT DATE: 20161211
